FAERS Safety Report 6299134-9 (Version None)
Quarter: 2009Q3

REPORT INFORMATION
  Report Type: 
  Country: None (occurrence: None)
  Receive Date: 20090804
  Receipt Date: 20090723
  Transmission Date: 20100115
  Serious: Yes (Death, Life-Threatening)
  Sender: FDA-Public Use
  Company Number: 2009AL005002

PATIENT
  Age: 68 Year
  Sex: Male

DRUGS (6)
  1. DICLOFENAC SODIUM [Suspect]
     Indication: RHEUMATOID ARTHRITIS
     Dosage: 150 MG; PO
     Route: 048
     Dates: start: 20030625, end: 20060209
  2. PARACETAMOL [Concomitant]
  3. ACETAMINOPHEN W/ CODEINE [Concomitant]
  4. FOLIC ACID [Concomitant]
  5. METHOTREXATE [Concomitant]
  6. PLACEBO [Concomitant]

REACTIONS (10)
  - ACUTE MYOCARDIAL INFARCTION [None]
  - AORTIC ARTERIOSCLEROSIS [None]
  - AORTIC CALCIFICATION [None]
  - ARTERIOSCLEROSIS CORONARY ARTERY [None]
  - CARDIAC ARREST [None]
  - CORONARY ARTERY RESTENOSIS [None]
  - HAEMORRHAGE [None]
  - PERICARDITIS [None]
  - SCAR [None]
  - VENTRICULAR HYPERTROPHY [None]
